FAERS Safety Report 14024567 (Version 1)
Quarter: 2017Q3

REPORT INFORMATION
  Report Type: Spontaneous
  Country: US (occurrence: US)
  Receive Date: 20170929
  Receipt Date: 20170929
  Transmission Date: 20171128
  Serious: Yes (Hospitalization)
  Sender: FDA-Public Use
  Company Number: US-MYLANLABS-2017M1060418

PATIENT
  Age: 62 Year
  Sex: Male

DRUGS (1)
  1. PALIPERIDONE. [Suspect]
     Active Substance: PALIPERIDONE
     Indication: PSYCHOTIC DISORDER
     Dosage: 234 MG, UNK
     Route: 030

REACTIONS (3)
  - Generalised tonic-clonic seizure [Recovered/Resolved]
  - Inappropriate antidiuretic hormone secretion [Recovered/Resolved]
  - Encephalopathy [Unknown]
